FAERS Safety Report 5887668-8 (Version None)
Quarter: 2008Q3

REPORT INFORMATION
  Report Type: 
  Country: None (occurrence: None)
  Receive Date: 20080918
  Receipt Date: 20080910
  Transmission Date: 20090109
  Serious: Yes (Other)
  Sender: FDA-Public Use
  Company Number: US-BAYER-200810321BCC

PATIENT
  Sex: Male

DRUGS (1)
  1. ALKA-SELTZER PLUS NIGHT COLD FORMULA [Suspect]
     Indication: NASOPHARYNGITIS
     Route: 065
     Dates: start: 20060101

REACTIONS (1)
  - UNEVALUABLE EVENT [None]
